FAERS Safety Report 9113955 (Version 1)
Quarter: 2013Q1

REPORT INFORMATION
  Report Type: Spontaneous
  Country: US (occurrence: US)
  Receive Date: 20130128
  Receipt Date: 20130128
  Transmission Date: 20140127
  Serious: No
  Sender: FDA-Public Use
  Company Number: US-009507513-1301USA011786

PATIENT
  Sex: Female
  Weight: 90.7 kg

DRUGS (1)
  1. NEXPLANON [Suspect]
     Indication: CONTRACEPTION
     Dosage: 1 ROD IN 3 YEARS
     Dates: start: 20120727

REACTIONS (3)
  - Abdominal pain upper [Unknown]
  - Menometrorrhagia [Unknown]
  - Weight increased [Unknown]
